FAERS Safety Report 17813202 (Version 1)
Quarter: 2020Q2

REPORT INFORMATION
  Report Type: Spontaneous
  Country: US (occurrence: US)
  Receive Date: 20200521
  Receipt Date: 20200521
  Transmission Date: 20200714
  Serious: No
  Sender: FDA-Public Use
  Company Number: US-BAUSCH-BL-2020-013318

PATIENT
  Age: 82 Year
  Sex: Male

DRUGS (3)
  1. TRULANCE [Suspect]
     Active Substance: PLECANATIDE
     Indication: GASTROINTESTINAL BACTERIAL OVERGROWTH
     Dosage: STARTED 1 TO 2 YEARS AGO AND DISCONTINUED AFTER 2 DAYS OF EVENT OCCURRED
     Route: 048
  2. TRULANCE [Suspect]
     Active Substance: PLECANATIDE
     Indication: PRODUCT USE IN UNAPPROVED INDICATION
  3. LINZESS [Suspect]
     Active Substance: LINACLOTIDE
     Indication: GASTROINTESTINAL BACTERIAL OVERGROWTH
     Dosage: STARTED 1 TO 2 YEARS AGO AND DISCONTINUED AFTER 2 DAYS OF EVENT OCCURRED
     Route: 048

REACTIONS (4)
  - Muscle spasms [Recovered/Resolved]
  - Diarrhoea [Recovered/Resolved]
  - Product prescribing error [Unknown]
  - Product use in unapproved indication [Unknown]
